FAERS Safety Report 6497790-3 (Version None)
Quarter: 2009Q4

REPORT INFORMATION
  Report Type: 
  Country: None (occurrence: None)
  Receive Date: 20091215
  Receipt Date: 20091204
  Transmission Date: 20100525
  Serious: No
  Sender: FDA-Public Use
  Company Number: US-JNJFOC-20091202539

PATIENT
  Sex: Male
  Weight: 88.91 kg

DRUGS (2)
  1. DURAGESIC-100 [Suspect]
     Indication: BACK PAIN
     Route: 062
  2. DURAGESIC-100 [Suspect]
     Route: 062
     Dates: start: 20091101

REACTIONS (5)
  - DRUG EFFECT DECREASED [None]
  - INCORRECT DRUG ADMINISTRATION RATE [None]
  - NERVOUSNESS [None]
  - RASH [None]
  - TREATMENT NONCOMPLIANCE [None]
